FAERS Safety Report 7418767-7 (Version None)
Quarter: 2011Q2

REPORT INFORMATION
  Report Type: 
  Country: None (occurrence: None)
  Receive Date: 20110415
  Receipt Date: 20110411
  Transmission Date: 20111010
  Serious: No
  Sender: FDA-Public Use
  Company Number: US-PFIZER INC-2010046497

PATIENT
  Sex: Female
  Weight: 54.4 kg

DRUGS (5)
  1. CELEBREX [Concomitant]
     Indication: ARTHRITIS
     Dosage: 200 MG, AS NEEDED
  2. PREMPRO [Suspect]
     Indication: MENOPAUSAL SYMPTOMS
     Dosage: 1.5 TABLET OF 0.625/2.5 MG
     Route: 048
  3. PREMPRO [Suspect]
     Indication: HOT FLUSH
  4. ESTRADIOL [Suspect]
     Indication: HOT FLUSH
  5. ESTRADIOL [Suspect]
     Indication: MENOPAUSAL SYMPTOMS
     Dosage: UNK

REACTIONS (3)
  - WRONG TECHNIQUE IN DRUG USAGE PROCESS [None]
  - INCORRECT DOSE ADMINISTERED [None]
  - DRUG INEFFECTIVE [None]
